FAERS Safety Report 6031654-4 (Version None)
Quarter: 2009Q1

REPORT INFORMATION
  Report Type: 
  Country: None (occurrence: None)
  Receive Date: 20090108
  Receipt Date: 20090105
  Transmission Date: 20090719
  Serious: Yes (Hospitalization)
  Sender: FDA-Public Use
  Company Number: GB-ASTRAZENECA-2009GB00101

PATIENT
  Age: 37 Year

DRUGS (4)
  1. QUETIAPINE FUMARATE [Suspect]
     Indication: PSYCHOTIC DISORDER
     Route: 048
     Dates: start: 20081127
  2. QUETIAPINE FUMARATE [Suspect]
     Dosage: LOWER DOSE
     Route: 048
     Dates: start: 20081201
  3. VENLAFAXINE HCL [Suspect]
     Indication: DEPRESSION
     Route: 048
  4. DEPAKOTE [Concomitant]

REACTIONS (1)
  - FAECALOMA [None]
